FAERS Safety Report 8572621-6 (Version None)
Quarter: 2012Q3

REPORT INFORMATION
  Report Type: 
  Country: None (occurrence: None)
  Receive Date: 20120806
  Receipt Date: 20120727
  Transmission Date: 20120928
  Serious: Yes (Death, Life-Threatening, Other)
  Sender: FDA-Public Use
  Company Number: JP-ROCHE-1094924

PATIENT
  Age: 7 Decade
  Sex: Male

DRUGS (4)
  1. ALIMTA [Concomitant]
     Indication: LUNG ADENOCARCINOMA METASTATIC
     Dosage: DOSAGE IS UNCERTAIN.
     Route: 041
     Dates: start: 20120229
  2. CARBOPLATIN [Concomitant]
     Indication: LUNG ADENOCARCINOMA METASTATIC
     Dosage: DOSAGE IS UNCERTAIN.
     Route: 041
     Dates: start: 20120229
  3. ASPIRIN [Concomitant]
     Dosage: DOSAGE IS UNCERTAIN.
     Route: 048
  4. AVASTIN [Suspect]
     Indication: LUNG ADENOCARCINOMA METASTATIC
     Dosage: DOSAGE IS UNCERTAIN.
     Route: 041
     Dates: start: 20120229

REACTIONS (8)
  - PNEUMONIA [None]
  - BACTERAEMIA [None]
  - PNEUMOTHORAX [None]
  - OESOPHAGOBRONCHIAL FISTULA [None]
  - LUNG INFECTION [None]
  - DELIRIUM [None]
  - VOMITING [None]
  - OESOPHAGEAL HAEMORRHAGE [None]
